FAERS Safety Report 9259255 (Version 1)
Quarter: 2013Q2

REPORT INFORMATION
  Report Type: Spontaneous
  Country: US (occurrence: US)
  Receive Date: 20130426
  Receipt Date: 20130426
  Transmission Date: 20140414
  Serious: No
  Sender: FDA-Public Use
  Company Number: US-ASTRAZENECA-2013SE23772

PATIENT
  Age: 80 Year
  Sex: Female
  Weight: 74.8 kg

DRUGS (3)
  1. SYMBICORT PMDI [Suspect]
     Route: 055
     Dates: start: 2012
  2. CRESTOR [Suspect]
     Route: 048
  3. CRESTOR [Suspect]
     Dosage: THREE TIMES PER WEEK
     Route: 048

REACTIONS (2)
  - Muscle spasms [Recovering/Resolving]
  - Off label use [Unknown]
